FAERS Safety Report 20186800 (Version 2)
Quarter: 2022Q1

REPORT INFORMATION
  Report Type: Report from Study
  Country: US (occurrence: None)
  Receive Date: 20211215
  Receipt Date: 20220211
  Transmission Date: 20220423
  Serious: Yes (Hospitalization)
  Sender: FDA-Public Use
  Company Number: US-ROCHE-2974198

PATIENT
  Age: 84 Year
  Sex: Female

DRUGS (3)
  1. ATEZOLIZUMAB [Suspect]
     Active Substance: ATEZOLIZUMAB
     Indication: Hepatocellular carcinoma
     Dosage: 26/NOV/2021:DATE OF LAST DOSE
     Route: 041
     Dates: start: 20211105
  2. BEVACIZUMAB [Suspect]
     Active Substance: BEVACIZUMAB
     Indication: Hepatocellular carcinoma
     Dosage: 26/NOV/2021:DATE OF LAST DOSE
     Route: 042
     Dates: start: 20211105
  3. ANASTROZOLE [Concomitant]
     Active Substance: ANASTROZOLE
     Route: 048
     Dates: start: 20211124, end: 20211202

REACTIONS (1)
  - Muscular weakness [Recovered/Resolved]

NARRATIVE: CASE EVENT DATE: 20211202
